FAERS Safety Report 4394008-2 (Version None)
Quarter: 2004Q3

REPORT INFORMATION
  Report Type: 
  Country: None (occurrence: None)
  Receive Date: 20040709
  Receipt Date: 20040702
  Transmission Date: 20050211
  Serious: Yes (Hospitalization, Other)
  Sender: FDA-Public Use
  Company Number: LB-MERCK-0407USA00178

PATIENT
  Age: 56 Year
  Sex: Male

DRUGS (5)
  1. [THERAPY UNSPECIFIED] [Concomitant]
     Route: 065
  2. ASPIRIN [Concomitant]
     Route: 065
  3. PLAVIX [Concomitant]
     Route: 065
  4. CORVASAL [Concomitant]
     Route: 065
  5. ZOCOR [Suspect]
     Route: 048

REACTIONS (1)
  - CHEST PAIN [None]
